FAERS Safety Report 10707049 (Version 2)
Quarter: 2015Q1

REPORT INFORMATION
  Report Type: Report from Study
  Country: CA (occurrence: CA)
  Receive Date: 20150113
  Receipt Date: 20150206
  Transmission Date: 20150721
  Serious: Yes (Hospitalization)
  Sender: FDA-Public Use
  Company Number: PHHY2015CA002438

PATIENT
  Age: 72 Year
  Sex: Female

DRUGS (1)
  1. SANDOSTATIN LAR DEPOT [Suspect]
     Active Substance: OCTREOTIDE ACETATE
     Indication: NEUROENDOCRINE TUMOUR
     Dosage: 30 MG, EVERY 4 WEEKS
     Route: 030
     Dates: start: 201410, end: 20150109

REACTIONS (4)
  - Drug ineffective [Unknown]
  - Fall [Unknown]
  - Foot fracture [Unknown]
  - Gait disturbance [Unknown]

NARRATIVE: CASE EVENT DATE: 201412
